FAERS Safety Report 9298960 (Version 1)
Quarter: 2013Q2

REPORT INFORMATION
  Report Type: Spontaneous
  Country: US (occurrence: US)
  Receive Date: 20130520
  Receipt Date: 20130520
  Transmission Date: 20140414
  Serious: No
  Sender: FDA-Public Use
  Company Number: US-SANOFI-AVENTIS-2013SA003680

PATIENT
  Age: 8 Year
  Sex: Female

DRUGS (2)
  1. APIDRA [Suspect]
     Indication: TYPE 1 DIABETES MELLITUS
     Dosage: DOSE:100 INTERNATIONAL UNIT(S)/MILLILITRE
     Route: 058
     Dates: start: 20121217
  2. LEVEMIR INSULIN [Concomitant]

REACTIONS (4)
  - Blood glucose increased [Unknown]
  - Overdose [Unknown]
  - Expired drug administered [Unknown]
  - Urine ketone body present [Unknown]
